FAERS Safety Report 12695370 (Version 1)
Quarter: 2016Q3

REPORT INFORMATION
  Report Type: Spontaneous
  Country: US (occurrence: US)
  Receive Date: 20160829
  Receipt Date: 20160829
  Transmission Date: 20161109
  Serious: Yes (Other)
  Sender: FDA-Public Use
  Company Number: US-BION-20160351

PATIENT
  Age: 37 Year
  Sex: Female
  Weight: 110.68 kg

DRUGS (8)
  1. PROGESTERONE CAPSULES [Suspect]
     Active Substance: PROGESTERONE
     Indication: OFF LABEL USE
     Dosage: 1 DF QD, VAGINAL
     Route: 067
     Dates: start: 20160730
  2. ESTRADIOL. [Concomitant]
     Active Substance: ESTRADIOL
  3. ZYRTEC [Concomitant]
     Active Substance: CETIRIZINE HYDROCHLORIDE
  4. OMEGA 3 [Concomitant]
     Active Substance: OMEGA-3 FATTY ACIDS
  5. VITAMIN B COMPLEX [Concomitant]
     Active Substance: CYANOCOBALAMIN\DEXPANTHENOL\NIACINAMIDE\PYRIDOXINE HYDROCHLORIDE\RIBOFLAVIN 5^-PHOSPHATE SODIUM\THIAMINE HYDROCHLORIDE\VITAMIN B COMPLEX
  6. VITAMIN D [Concomitant]
     Active Substance: CHOLECALCIFEROL
  7. PROGESTERONE (SOLVAY PHARMA) [Suspect]
     Active Substance: PROGESTERONE
     Dosage: 1 DF, QD VAGINAL
     Route: 067
  8. SINGULAIR [Concomitant]
     Active Substance: MONTELUKAST SODIUM

REACTIONS (6)
  - Abortion spontaneous [Unknown]
  - Product use issue [Unknown]
  - Emotional disorder [Unknown]
  - Exposure during pregnancy [Unknown]
  - Incorrect route of drug administration [Unknown]
  - Vaginal discharge [Unknown]
